FAERS Safety Report 7148905-5 (Version None)
Quarter: 2010Q4

REPORT INFORMATION
  Report Type: 
  Country: None (occurrence: None)
  Receive Date: 20101209
  Receipt Date: 20101129
  Transmission Date: 20110411
  Serious: Yes (Congenital Anomaly)
  Sender: FDA-Public Use
  Company Number: A0756637A

PATIENT
  Sex: Female

DRUGS (20)
  1. PAXIL CR [Suspect]
     Indication: DEPRESSION
     Dosage: 12.5MG UNKNOWN
  2. PAXIL [Suspect]
     Indication: DEPRESSION
     Dates: start: 20040901, end: 20050501
  3. HYDROCHLOROTHIAZIDE [Concomitant]
  4. PREVACID [Concomitant]
  5. PHENERGAN [Concomitant]
  6. DECADRON [Concomitant]
     Dates: start: 20041001
  7. STADOL [Concomitant]
     Dates: start: 20041001
  8. PHENERGAN [Concomitant]
  9. ROCEPHIN [Concomitant]
     Dates: start: 20041016
  10. MAALOX [Concomitant]
  11. EXCEDRIN (MIGRAINE) [Concomitant]
  12. REGLAN [Concomitant]
  13. PERCOCET [Concomitant]
  14. ZOFRAN [Concomitant]
  15. DEMEROL [Concomitant]
  16. DIOVAN HCT [Concomitant]
  17. IMITREX [Concomitant]
  18. LORTAB [Concomitant]
  19. HEMOCYTE [Concomitant]
  20. POTASSIUM CHLORIDE [Concomitant]
     Dates: start: 20050101

REACTIONS (7)
  - ARTERIAL OCCLUSIVE DISEASE [None]
  - CARDIAC DISORDER [None]
  - CARDIAC MURMUR [None]
  - CONGENITAL ANOMALY [None]
  - DRUG EXPOSURE DURING PREGNANCY [None]
  - FALLOT'S TETRALOGY [None]
  - VENTRICULAR SEPTAL DEFECT [None]
